FAERS Safety Report 20703778 (Version 4)
Quarter: 2025Q2

REPORT INFORMATION
  Report Type: Report from Study
  Country: CA (occurrence: CA)
  Receive Date: 20220413
  Receipt Date: 20250611
  Transmission Date: 20250716
  Serious: Yes (Other)
  Sender: TAKEDA
  Company Number: CA-TAKEDA-2021TUS064146

PATIENT
  Sex: Female

DRUGS (23)
  1. VEDOLIZUMAB [Suspect]
     Active Substance: VEDOLIZUMAB
     Indication: Colitis ulcerative
  2. VEDOLIZUMAB [Suspect]
     Active Substance: VEDOLIZUMAB
  3. VEDOLIZUMAB [Suspect]
     Active Substance: VEDOLIZUMAB
  4. VEDOLIZUMAB [Suspect]
     Active Substance: VEDOLIZUMAB
  5. VEDOLIZUMAB [Suspect]
     Active Substance: VEDOLIZUMAB
  6. DILTIAZEM [Concomitant]
     Active Substance: DILTIAZEM
  7. CANDESARTAN [Concomitant]
     Active Substance: CANDESARTAN
  8. PENTASA [Concomitant]
     Active Substance: MESALAMINE
     Dosage: 4 GRAM, QD
     Dates: start: 202012
  9. PENTASA [Concomitant]
     Active Substance: MESALAMINE
     Dosage: 1 GRAM, BID
  10. ENTOCORT [Concomitant]
     Active Substance: BUDESONIDE
     Dosage: 115 MILLIGRAM, QD
     Dates: start: 202012
  11. RABEPRAZOLE [Concomitant]
     Active Substance: RABEPRAZOLE
  12. HYDROCHLOROTHIAZIDE [Concomitant]
     Active Substance: HYDROCHLOROTHIAZIDE
  13. VITAMIN D3 [Concomitant]
     Active Substance: CHOLECALCIFEROL
  14. FERROUS SULFATE [Concomitant]
     Active Substance: FERROUS SULFATE
  15. B12 [Concomitant]
  16. FOLIC ACID [Concomitant]
     Active Substance: FOLIC ACID
  17. PREGABALIN [Concomitant]
     Active Substance: PREGABALIN
  18. NITROGLYCERIN [Concomitant]
     Active Substance: NITROGLYCERIN
  19. ARNUITY ELLIPTA [Concomitant]
     Active Substance: FLUTICASONE FUROATE
  20. ARNUITY ELLIPTA [Concomitant]
     Active Substance: FLUTICASONE FUROATE
  21. ALBUTEROL [Concomitant]
     Active Substance: ALBUTEROL
  22. METAMUCIL [Concomitant]
     Active Substance: PLANTAGO SEED
     Dosage: UNK UNK, QD
  23. ASPIRIN [Concomitant]
     Active Substance: ASPIRIN

REACTIONS (1)
  - Colitis ulcerative [Unknown]
